FAERS Safety Report 13902057 (Version 3)
Quarter: 2017Q4

REPORT INFORMATION
  Report Type: Report from Study
  Country: None (occurrence: GB)
  Receive Date: 20170824
  Receipt Date: 20171003
  Transmission Date: 20180320
  Serious: Yes (Death)
  Sender: FDA-Public Use
  Company Number: GB-ABBVIE-17K-167-2080511-00

PATIENT
  Age: 71 Year
  Sex: Female

DRUGS (1)
  1. HUMIRA [Suspect]
     Active Substance: ADALIMUMAB
     Indication: RHEUMATOID ARTHRITIS
     Route: 058
     Dates: start: 20030715

REACTIONS (4)
  - Acute myocardial infarction [Fatal]
  - Atrial fibrillation [Fatal]
  - Breast cancer female [Fatal]
  - Pneumonia [Fatal]

NARRATIVE: CASE EVENT DATE: 20141015
